FAERS Safety Report 23735721 (Version 1)
Quarter: 2024Q2

REPORT INFORMATION
  Report Type: Spontaneous
  Country: US (occurrence: US)
  Receive Date: 20240412
  Receipt Date: 20240412
  Transmission Date: 20240716
  Serious: Yes (Hospitalization)
  Sender: FDA-Public Use
  Company Number: US-MYLANLABS-2024M1031849

PATIENT
  Age: 39 Year
  Sex: Male

DRUGS (1)
  1. DAPSONE [Suspect]
     Active Substance: DAPSONE
     Indication: Antifungal prophylaxis
     Dosage: UNK
     Route: 065

REACTIONS (5)
  - Methaemoglobinaemia [Recovered/Resolved]
  - Myocardial injury [Recovered/Resolved]
  - Pulmonary congestion [Recovered/Resolved]
  - Troponin increased [Recovered/Resolved]
  - Off label use [Unknown]
